FAERS Safety Report 9126577 (Version 2)
Quarter: 2013Q2

REPORT INFORMATION
  Report Type: Spontaneous
  Country: US (occurrence: US)
  Receive Date: 20130117
  Receipt Date: 20130606
  Transmission Date: 20140414
  Serious: No
  Sender: FDA-Public Use
  Company Number: US-009507513-1301USA008364

PATIENT
  Age: 54 Year
  Sex: Female
  Weight: 61.22 kg

DRUGS (10)
  1. CLARITIN-D 12 HOUR [Suspect]
     Indication: SINUS CONGESTION
     Dosage: 10 MG, QAM
     Route: 048
     Dates: start: 20130105
  2. CLARITIN-D 12 HOUR [Suspect]
     Indication: CHRONIC SINUSITIS
     Dosage: UNK UNK, UNKNOWN
     Route: 048
     Dates: start: 1997
  3. CLARITIN-D 12 HOUR [Suspect]
     Indication: ALLERGIC SINUSITIS
  4. CLARITIN-D 12 HOUR [Suspect]
     Indication: MEDICAL OBSERVATION
  5. ADVAIR [Concomitant]
     Indication: ASTHMA
     Dosage: UNK, UNKNOWN
  6. VENTOLIN (ALBUTEROL SULFATE) [Concomitant]
     Indication: ASTHMA
     Dosage: UNK, UNKNOWN
  7. OMEGA-3 MARINE TRIGLYCERIDES [Concomitant]
     Indication: PRODUCT USED FOR UNKNOWN INDICATION
     Dosage: UNK, UNKNOWN
  8. CYANOCOBALAMIN [Concomitant]
     Indication: PRODUCT USED FOR UNKNOWN INDICATION
     Dosage: UNK, UNKNOWN
  9. VERAMYST [Concomitant]
     Indication: RHINITIS
  10. VERAMYST [Concomitant]
     Indication: SINUSITIS

REACTIONS (4)
  - Dizziness [Not Recovered/Not Resolved]
  - Euphoric mood [Not Recovered/Not Resolved]
  - Headache [Not Recovered/Not Resolved]
  - Inappropriate schedule of drug administration [Recovered/Resolved]
